FAERS Safety Report 21611727 (Version 1)
Quarter: 2022Q4

REPORT INFORMATION
  Report Type: Spontaneous
  Country: US (occurrence: None)
  Receive Date: 20221117
  Receipt Date: 20221117
  Transmission Date: 20230113
  Serious: No
  Sender: FDA-Public Use
  Company Number: None

PATIENT
  Age: 53 Year
  Sex: Female

DRUGS (1)
  1. TALTZ [Suspect]
     Active Substance: IXEKIZUMAB
     Dosage: 80MG Q 4 WEEKS UNDER THE SKIN?
     Route: 058
     Dates: start: 20220501

REACTIONS (4)
  - Rash [None]
  - Psoriasis [None]
  - Psoriasis [None]
  - Ear disorder [None]
